FAERS Safety Report 4610994-7 (Version None)
Quarter: 2005Q1

REPORT INFORMATION
  Report Type: 
  Country: None (occurrence: None)
  Receive Date: 20050316
  Receipt Date: 20050316
  Transmission Date: 20050727
  Serious: Yes (Hospitalization)
  Sender: FDA-Public Use
  Company Number: None

PATIENT
  Age: 73 Year
  Sex: Male
  Weight: 57.8 kg

DRUGS (17)
  1. PHENYTOIN [Suspect]
     Indication: CONVULSION
     Dosage: 400 MG, 400 MG QH, ORAL
     Route: 048
  2. LORATADINE [Concomitant]
  3. OMEPRAZOLE [Concomitant]
  4. MECLIZINE HCL [Concomitant]
  5. CITALOPRAM HYDROBROMIDE [Concomitant]
  6. DONEPEZIL HCL [Concomitant]
  7. LISINOPRIL [Concomitant]
  8. MULTIVITAMIN/MINERALS THERAPEUT [Concomitant]
  9. OXYCODONE AND ACETAMINOPHEN [Concomitant]
  10. SIMETHICONE [Concomitant]
  11. ALBUTEROL/IPRATROP [Concomitant]
  12. ALENDRONATE SODIUM [Concomitant]
  13. GABAPENTIN [Concomitant]
  14. FUROSEMIDE [Concomitant]
  15. VITAMIN E [Concomitant]
  16. CARVEDILOL [Concomitant]
  17. LANOXIN [Concomitant]

REACTIONS (1)
  - DRUG LEVEL ABOVE THERAPEUTIC [None]
